FAERS Safety Report 7583977-5 (Version None)
Quarter: 2011Q2

REPORT INFORMATION
  Report Type: 
  Country: None (occurrence: None)
  Receive Date: 20110628
  Receipt Date: 20110628
  Transmission Date: 20111010
  Serious: Yes (Hospitalization)
  Sender: FDA-Public Use
  Company Number: None

PATIENT
  Sex: Female

DRUGS (1)
  1. ETODOLAC [Suspect]
     Indication: ANTIINFLAMMATORY THERAPY
     Dosage: 1 TABLET 3X DAY MOUTH
     Route: 048
     Dates: start: 20110408, end: 20110410

REACTIONS (4)
  - PRESYNCOPE [None]
  - COLITIS [None]
  - DIVERTICULITIS [None]
  - DIARRHOEA [None]
